FAERS Safety Report 18985698 (Version 1)
Quarter: 2021Q1

REPORT INFORMATION
  Report Type: Spontaneous
  Country: DE (occurrence: DE)
  Receive Date: 20210309
  Receipt Date: 20210309
  Transmission Date: 20210420
  Serious: Yes (Hospitalization)
  Sender: FDA-Public Use
  Company Number: DE-TEVA-2021-DE-1887264

PATIENT
  Age: 6 Year
  Sex: Female
  Weight: 17 kg

DRUGS (6)
  1. MANNITOL. [Concomitant]
     Active Substance: MANNITOL
     Route: 042
  2. CISPLATIN. [Suspect]
     Active Substance: CISPLATIN
     Indication: MEDULLOBLASTOMA
     Dosage: 50 MILLIGRAM DAILY;
     Route: 042
     Dates: start: 20201110, end: 20201110
  3. CCNU [Suspect]
     Active Substance: LOMUSTINE
     Indication: MEDULLOBLASTOMA
     Dosage: 40 MILLIGRAM DAILY;
     Route: 048
     Dates: start: 20201110, end: 20201110
  4. VINCRISTINE [Concomitant]
     Active Substance: VINCRISTINE
     Indication: MEDULLOBLASTOMA
     Dosage: 1.1MG
     Route: 042
     Dates: start: 20201110, end: 20201124
  5. ONDANSETRON [Concomitant]
     Active Substance: ONDANSETRON
     Dosage: DAILY DOSE: 12 MG MILLGRAM(S) EVERY DAYS 3 SEPARATED DOSES, 12MG
     Route: 042
     Dates: start: 20201109, end: 20201112
  6. EMEND [Concomitant]
     Active Substance: APREPITANT
     Dosage: 50 MILLIGRAM DAILY;
     Route: 048
     Dates: start: 20201110, end: 20201110

REACTIONS (4)
  - Acidosis [Unknown]
  - Rhonchi [Unknown]
  - Pneumonitis [Unknown]
  - Dyspnoea [Unknown]

NARRATIVE: CASE EVENT DATE: 20201110
